FAERS Safety Report 18492241 (Version 1)
Quarter: 2020Q4

REPORT INFORMATION
  Report Type: Spontaneous
  Country: IT (occurrence: IT)
  Receive Date: 20201111
  Receipt Date: 20201111
  Transmission Date: 20210114
  Serious: Yes (Other)
  Sender: FDA-Public Use
  Company Number: IT-FRESENIUS KABI-FK202011984

PATIENT
  Age: 58 Year
  Sex: Female

DRUGS (1)
  1. PACLITAXEL (MANUFACTURER UNKNOWN) [Suspect]
     Active Substance: PACLITAXEL
     Indication: EXTRAMAMMARY PAGET^S DISEASE
     Route: 065
     Dates: start: 201911

REACTIONS (5)
  - Neurotoxicity [Unknown]
  - Alopecia [Unknown]
  - Skin discolouration [Unknown]
  - Neuropathy peripheral [Unknown]
  - Off label use [Unknown]
